FAERS Safety Report 9345306 (Version 1)
Quarter: 2013Q2

REPORT INFORMATION
  Report Type: Spontaneous
  Country: FR (occurrence: FR)
  Receive Date: 20130613
  Receipt Date: 20130613
  Transmission Date: 20140414
  Serious: Yes (Hospitalization)
  Sender: FDA-Public Use
  Company Number: FR-ASTRAZENECA-2013SE41745

PATIENT
  Age: 7506 Day
  Sex: Female

DRUGS (15)
  1. XEROQUEL [Suspect]
     Route: 048
     Dates: start: 20130409, end: 20130419
  2. XEROQUEL [Suspect]
     Route: 048
     Dates: start: 20130419, end: 20130423
  3. XEROQUEL [Suspect]
     Route: 048
     Dates: start: 20130423
  4. LOXAPAC [Concomitant]
     Dosage: 50 MG, 2 DF IN THE MORNING 2 DF AT MIDDAY AND 2 DF IN THE EVENING
  5. TERCIAN [Concomitant]
     Dosage: 25 MG, 2 DF IN THE MORNING 1 DF AT MIDDAY 2 DF IN THE EVENING
  6. OLANZAPINE [Concomitant]
     Dosage: 10 MG, 1 DF IN THE MORNING AND 1 DF IN THE EVENING
  7. LAROXYL [Concomitant]
     Dosage: 10 DROPS AT 19:00
  8. TRANXENE [Concomitant]
     Dosage: 20 MG, 1 DF IN THE MORNING 1 DF AT MIDDAY AND 1 DF IN THE EVENING
  9. ZOLPIDEM [Concomitant]
  10. HALDOL [Concomitant]
     Dosage: 5 MG, 2 DF IN THE MORNING 2 DF AT MIDDAY AND 2 DF IN THE EVENING
  11. MOVICOL [Concomitant]
     Dosage: 1 DF IN THE MORNING AND 1 DF AT MIDDAY
  12. DAFALGAN [Concomitant]
  13. SPASFON [Concomitant]
     Dosage: AS REQUIRED
  14. ADEPAL [Concomitant]
     Dosage: 1 DF IN THE MORNING 21 DAYS PER MONTH
  15. PLACEBO [Concomitant]
     Dosage: AS REQUIRED

REACTIONS (1)
  - Urinary retention [Recovered/Resolved]
